FAERS Safety Report 13614393 (Version 2)
Quarter: 2017Q2

REPORT INFORMATION
  Report Type: Other
  Country: JP (occurrence: JP)
  Receive Date: 20170606
  Receipt Date: 20170626
  Transmission Date: 20170830
  Serious: Yes (Death)
  Sender: FDA-Public Use
  Company Number: JP-ACTELION-A-CH2017-154565

PATIENT
  Age: 48 Year
  Sex: Female

DRUGS (12)
  1. BOSENTAN. [Suspect]
     Active Substance: BOSENTAN
     Indication: THROMBOTIC MICROANGIOPATHY
     Route: 048
  2. SAMSCA [Concomitant]
     Active Substance: TOLVAPTAN
     Dosage: UNK
     Dates: start: 20161214, end: 20170105
  3. UPTRAVI [Suspect]
     Active Substance: SELEXIPAG
     Indication: THROMBOTIC MICROANGIOPATHY
     Dosage: 1200 ?G, BID
     Route: 048
     Dates: start: 20161216, end: 20170105
  4. OPSUMIT [Concomitant]
     Active Substance: MACITENTAN
     Indication: PRODUCT USED FOR UNKNOWN INDICATION
     Dosage: UNK
     Route: 048
     Dates: start: 20161208, end: 20170105
  5. BOSENTAN. [Suspect]
     Active Substance: BOSENTAN
     Indication: TUMOUR EMBOLISM
  6. OXYGEN. [Concomitant]
     Active Substance: OXYGEN
  7. REVATIO [Concomitant]
     Active Substance: SILDENAFIL CITRATE
     Dosage: UNK
     Dates: start: 20161206, end: 20170105
  8. XARELTO [Concomitant]
     Active Substance: RIVAROXABAN
     Dosage: UNK
     Dates: start: 20161207, end: 20170105
  9. FUROSEMIDE. [Concomitant]
     Active Substance: FUROSEMIDE
     Dosage: UNK
     Dates: start: 20161206, end: 20170105
  10. EDOXABAN [Concomitant]
     Active Substance: EDOXABAN TOSYLATE
  11. UPTRAVI [Suspect]
     Active Substance: SELEXIPAG
     Dosage: 800 ?G, BID
     Route: 048
     Dates: start: 20161213, end: 20161215
  12. UPTRAVI [Suspect]
     Active Substance: SELEXIPAG
     Dosage: 400 ?G, QD
     Route: 048
     Dates: start: 20161209, end: 20161212

REACTIONS (1)
  - Malignant pleural effusion [Fatal]
